FAERS Safety Report 21508821 (Version 4)
Quarter: 2022Q4

REPORT INFORMATION
  Report Type: Report from Study
  Country: JP (occurrence: JP)
  Receive Date: 20221026
  Receipt Date: 20221222
  Transmission Date: 20230113
  Serious: Yes (Hospitalization, Other)
  Sender: FDA-Public Use
  Company Number: JP-002147023-NVSC2022JP231031

PATIENT

DRUGS (18)
  1. RUXOLITINIB [Suspect]
     Active Substance: RUXOLITINIB
     Indication: Myelofibrosis
     Dosage: 15 MG, BID
     Route: 048
     Dates: start: 20220831, end: 20221011
  2. RUXOLITINIB [Suspect]
     Active Substance: RUXOLITINIB
     Dosage: 10 MG, BID
     Route: 048
     Dates: start: 20221109
  3. NAVITOCLAX [Suspect]
     Active Substance: NAVITOCLAX
     Indication: Myelofibrosis
     Dosage: UNK
     Route: 065
     Dates: start: 20220831, end: 20221011
  4. NAVITOCLAX [Suspect]
     Active Substance: NAVITOCLAX
     Dosage: UNK
     Route: 065
     Dates: start: 20221109, end: 20221120
  5. SAMSCA [Concomitant]
     Active Substance: TOLVAPTAN
     Indication: Portal hypertension
     Dosage: 7.5 MG, QD
     Route: 065
     Dates: start: 20220107
  6. FLUTICASONE PROPIONATE\FORMOTEROL FUMARATE [Concomitant]
     Active Substance: FLUTICASONE PROPIONATE\FORMOTEROL FUMARATE
     Indication: Asthma
     Dosage: 390 MG, BID, (AEROSOL)
     Route: 065
     Dates: start: 20210601
  7. SPIRONOLACTONE [Concomitant]
     Active Substance: SPIRONOLACTONE
     Indication: Portal hypertension
     Dosage: 50 MG, QD
     Route: 065
     Dates: start: 20210428, end: 20220908
  8. SPIRONOLACTONE [Concomitant]
     Active Substance: SPIRONOLACTONE
     Dosage: 25 MG, QD
     Route: 065
     Dates: start: 20220909
  9. AZOSEMIDE [Concomitant]
     Active Substance: AZOSEMIDE
     Indication: Portal hypertension
     Dosage: 30 MG, QOD (ONCE EVERY 2 DAYS)
     Route: 065
     Dates: start: 20220506
  10. AZOSEMIDE [Concomitant]
     Active Substance: AZOSEMIDE
     Dosage: 30 MG, QD
     Route: 065
     Dates: start: 20221104
  11. FEBRICET [Concomitant]
     Indication: Hyperuricaemia
     Dosage: 40 MG, QD
     Route: 065
     Dates: start: 20210428
  12. RABEPRAZOLE SODIUM [Concomitant]
     Active Substance: RABEPRAZOLE SODIUM
     Indication: Gastritis prophylaxis
     Dosage: 10 MG, QD
     Route: 065
     Dates: start: 20210428
  13. FEBUXOSTAT [Concomitant]
     Active Substance: FEBUXOSTAT
     Indication: Hyperuricaemia
     Dosage: 40 MG, QD
     Route: 065
     Dates: start: 20210428, end: 20221103
  14. FEBUXOSTAT [Concomitant]
     Active Substance: FEBUXOSTAT
     Dosage: 20 MG, QD
     Route: 065
     Dates: start: 20221104
  15. CLOBETASOL PROPIONATE [Concomitant]
     Active Substance: CLOBETASOL PROPIONATE
     Indication: Dermatitis contact
     Dosage: 0.05 %, BID
     Route: 065
     Dates: start: 20221029
  16. PETROLATUM;SALICYLIC ACID [Concomitant]
     Indication: Prophylaxis
     Dosage: UNK (EVERY 1 DAYS)
     Route: 065
     Dates: start: 20221125
  17. AMLODIPINE [Concomitant]
     Active Substance: AMLODIPINE BESYLATE
     Indication: Hypertension
     Dosage: 5 MG (EVERY 1 DAYS)
     Route: 065
     Dates: start: 20221125
  18. MIYABM [Concomitant]
     Indication: Product used for unknown indication
     Dosage: 2 DOSAGE FORM, TID
     Route: 065
     Dates: start: 20221122

REACTIONS (13)
  - C-reactive protein increased [Unknown]
  - Corynebacterium infection [Unknown]
  - Dizziness [Unknown]
  - Pyrexia [Recovered/Resolved]
  - Hyperkalaemia [Unknown]
  - Acidosis [Unknown]
  - Constipation [Unknown]
  - Neutropenia [Unknown]
  - Renal impairment [Unknown]
  - Sepsis [Not Recovered/Not Resolved]
  - Urinary tract infection [Not Recovered/Not Resolved]
  - White blood cell count decreased [Unknown]
  - Anaemia [Unknown]

NARRATIVE: CASE EVENT DATE: 20220907
